FAERS Safety Report 15601033 (Version 2)
Quarter: 2019Q2

REPORT INFORMATION
  Report Type: Spontaneous
  Country: US (occurrence: US)
  Receive Date: 20181109
  Receipt Date: 20190516
  Transmission Date: 20190711
  Serious: No
  Sender: FDA-Public Use
  Company Number: US-KYOWAKIRIN-2018BKK007778

PATIENT

DRUGS (2)
  1. CRYSVITA [Suspect]
     Active Substance: BUROSUMAB-TWZA
     Indication: HYPOPHOSPHATAEMIA
     Dosage: 30 MG, 1X/2 WEEKS
     Route: 058
     Dates: start: 20180903
  2. TYLENOL [Concomitant]
     Active Substance: ACETAMINOPHEN
     Indication: MYALGIA
     Dosage: UNKNOWN
     Route: 065

REACTIONS (5)
  - Condition aggravated [Unknown]
  - Inappropriate schedule of product administration [Recovered/Resolved]
  - Pain in extremity [Unknown]
  - Myalgia [Unknown]
  - Agitation [Unknown]

NARRATIVE: CASE EVENT DATE: 2018
